FAERS Safety Report 13354528 (Version 1)
Quarter: 2017Q1

REPORT INFORMATION
  Report Type: Spontaneous
  Country: US (occurrence: US)
  Receive Date: 20170320
  Receipt Date: 20170320
  Transmission Date: 20170429
  Serious: Yes (Hospitalization)
  Sender: FDA-Public Use
  Company Number: None

PATIENT
  Age: 54 Year
  Sex: Male
  Weight: 98.2 kg

DRUGS (1)
  1. LISINOPRIL. [Suspect]
     Active Substance: LISINOPRIL
     Indication: HYPERTENSION
     Route: 048
     Dates: start: 20160803, end: 20170217

REACTIONS (4)
  - Dehydration [None]
  - Acute kidney injury [None]
  - Diarrhoea [None]
  - Hyponatraemia [None]

NARRATIVE: CASE EVENT DATE: 20170217
